FAERS Safety Report 6037467-1 (Version None)
Quarter: 2009Q1

REPORT INFORMATION
  Report Type: 
  Country: None (occurrence: None)
  Receive Date: 20090114
  Receipt Date: 20090108
  Transmission Date: 20090719
  Serious: Yes (Death, Other)
  Sender: FDA-Public Use
  Company Number: US-PFIZER INC-2008095598

PATIENT
  Sex: Female
  Weight: 85 kg

DRUGS (13)
  1. LYRICA [Suspect]
     Indication: PAIN IN EXTREMITY
     Dosage: UNK
     Dates: start: 20070101
  2. LYRICA [Suspect]
     Indication: BACK PAIN
  3. MULTI-VITAMINS [Concomitant]
  4. MOTRIN [Concomitant]
  5. TYLENOL (CAPLET) [Concomitant]
  6. LISINOPRIL [Concomitant]
  7. HYDROCHLOROTHIAZIDE [Concomitant]
  8. METOPROLOL [Concomitant]
  9. ACYCLOVIR [Concomitant]
  10. STOOL SOFTENER [Concomitant]
  11. IMIPRAMINE [Concomitant]
  12. DIPHENHYDRAMINE HCL [Concomitant]
  13. DURAGESIC-100 [Concomitant]

REACTIONS (2)
  - INTERVERTEBRAL DISC PROTRUSION [None]
  - SLEEP APNOEA SYNDROME [None]
